FAERS Safety Report 22043292 (Version 4)
Quarter: 2024Q1

REPORT INFORMATION
  Report Type: Spontaneous
  Country: US (occurrence: US)
  Receive Date: 20230228
  Receipt Date: 20240212
  Transmission Date: 20240409
  Serious: No
  Sender: FDA-Public Use
  Company Number: US-KYOWAKIRIN-2023BKK002881

PATIENT

DRUGS (3)
  1. POTELIGEO [Suspect]
     Active Substance: MOGAMULIZUMAB-KPKC
     Indication: Cutaneous T-cell lymphoma
     Dosage: UNK, 1X/2 WEEKS (EVERY OTHER WEEK)
     Route: 042
     Dates: start: 202204, end: 202304
  2. POTELIGEO [Suspect]
     Active Substance: MOGAMULIZUMAB-KPKC
     Dosage: UNK, 1X/2 WEEKS (EVERY OTHER WEEK)
     Route: 042
     Dates: start: 20230526
  3. POTELIGEO [Suspect]
     Active Substance: MOGAMULIZUMAB-KPKC
     Dosage: UNK
     Route: 042
     Dates: start: 20230726

REACTIONS (12)
  - Rash [Not Recovered/Not Resolved]
  - Fatigue [Unknown]
  - Nausea [Unknown]
  - Drug eruption [Unknown]
  - Benign lymph node neoplasm [Not Recovered/Not Resolved]
  - Procedural pain [Unknown]
  - Rhinalgia [Unknown]
  - Mouth ulceration [Unknown]
  - Lethargy [Recovering/Resolving]
  - Erythema [Unknown]
  - Lymphadenopathy [Unknown]
  - Unevaluable event [Not Recovered/Not Resolved]

NARRATIVE: CASE EVENT DATE: 20220101
